FAERS Safety Report 6937238-5 (Version None)
Quarter: 2010Q3

REPORT INFORMATION
  Report Type: 
  Country: None (occurrence: None)
  Receive Date: 20100823
  Receipt Date: 20100813
  Transmission Date: 20110219
  Serious: Yes (Death, Hospitalization)
  Sender: FDA-Public Use
  Company Number: A0876891A

PATIENT
  Sex: Female
  Weight: 50 kg

DRUGS (3)
  1. SERETIDE [Suspect]
     Indication: BACILLUS INFECTION
     Route: 055
     Dates: start: 20090801, end: 20100731
  2. SPIRIVA [Concomitant]
     Dates: start: 20090801, end: 20100731
  3. BEROTEC [Concomitant]
     Dates: start: 19900101, end: 20100731

REACTIONS (1)
  - PNEUMONIA [None]
